FAERS Safety Report 6217672-1 (Version None)
Quarter: 2009Q2

REPORT INFORMATION
  Report Type: 
  Country: None (occurrence: None)
  Receive Date: 20090603
  Receipt Date: 20090603
  Transmission Date: 20091009
  Serious: Yes (Death, Life-Threatening, Hospitalization)
  Sender: FDA-Public Use
  Company Number: None

PATIENT
  Sex: Female
  Weight: 38.5557 kg

DRUGS (1)
  1. DIGOXIN [Suspect]
     Indication: ATRIAL FIBRILLATION
     Dosage: 250 MCG ONCE A DAY
     Dates: start: 20080518, end: 20090405

REACTIONS (3)
  - MALAISE [None]
  - NAUSEA [None]
  - THERAPEUTIC AGENT TOXICITY [None]
